FAERS Safety Report 9407953 (Version 1)
Quarter: 2013Q1

REPORT INFORMATION
  Report Type: Spontaneous
  Country: US (occurrence: None)
  Receive Date: 20130308
  Receipt Date: 20130308
  Transmission Date: 20140127
  Serious: Yes (Other)
  Sender: FDA-Public Use
  Company Number: 2013P1002591

PATIENT
  Age: 75 Year
  Sex: Female

DRUGS (1)
  1. LOSARTAN POTASSIUM TABLETS USP 50 MG [Suspect]
     Indication: HYPERTENSION
     Route: 048
     Dates: start: 201301, end: 20130218

REACTIONS (3)
  - Blood pressure increased [None]
  - Product quality issue [None]
  - Drug effect decreased [None]
